FAERS Safety Report 7013998-2 (Version None)
Quarter: 2010Q3

REPORT INFORMATION
  Report Type: 
  Country: None (occurrence: None)
  Receive Date: 20100926
  Receipt Date: 20100917
  Transmission Date: 20110219
  Serious: Yes (Other)
  Sender: FDA-Public Use
  Company Number: BR-BRISTOL-MYERS SQUIBB COMPANY-15299621

PATIENT
  Age: 79 Year
  Sex: Male

DRUGS (9)
  1. ONGLYZA [Suspect]
     Indication: TYPE 2 DIABETES MELLITUS
     Route: 048
     Dates: start: 20100712, end: 20100901
  2. GLUCOVANCE [Concomitant]
     Indication: DIABETES MELLITUS
     Dosage: 1 DOSAGE FORM = 500MG/5MG
  3. NAPRIX [Concomitant]
  4. CARDILOL [Concomitant]
  5. LASIX [Concomitant]
  6. ALDACTONE [Concomitant]
  7. SOMALGIN [Concomitant]
  8. CEBRALAT [Concomitant]
  9. LORAX [Concomitant]

REACTIONS (1)
  - PANCREATITIS [None]
